FAERS Safety Report 4463243-7 (Version None)
Quarter: 2004Q3

REPORT INFORMATION
  Report Type: 
  Country: None (occurrence: None)
  Receive Date: 20040930
  Receipt Date: 20040720
  Transmission Date: 20050211
  Serious: Yes (Other)
  Sender: FDA-Public Use
  Company Number: BE-GLAXOSMITHKLINE-B0340550A

PATIENT
  Age: 80 Year
  Sex: Female

DRUGS (1)
  1. SEROXAT [Suspect]
     Route: 048

REACTIONS (2)
  - ACTINIC KERATOSIS [None]
  - VASCULITIS [None]
